FAERS Safety Report 12445409 (Version 1)
Quarter: 2016Q2

REPORT INFORMATION
  Report Type: Spontaneous
  Country: TR (occurrence: TR)
  Receive Date: 20160608
  Receipt Date: 20160608
  Transmission Date: 20160815
  Serious: Yes (Death, Hospitalization)
  Sender: FDA-Public Use
  Company Number: TR-ROCHE-1770214

PATIENT
  Age: 64 Year
  Sex: Male

DRUGS (1)
  1. RITUXIMAB [Suspect]
     Active Substance: RITUXIMAB
     Indication: NON-HODGKIN^S LYMPHOMA
     Route: 065

REACTIONS (4)
  - Hepatic encephalopathy [Fatal]
  - Acute hepatic failure [Fatal]
  - Hepatitis B [Fatal]
  - Hepatorenal syndrome [Fatal]
